FAERS Safety Report 12184135 (Version 1)
Quarter: 2016Q1

REPORT INFORMATION
  Report Type: Spontaneous
  Country: US (occurrence: US)
  Receive Date: 20160316
  Receipt Date: 20160316
  Transmission Date: 20160526
  Serious: No
  Sender: FDA-Public Use
  Company Number: US-ELI_LILLY_AND_COMPANY-US201602007576

PATIENT
  Age: 41 Year
  Sex: Female

DRUGS (1)
  1. ZYPREXA [Suspect]
     Active Substance: OLANZAPINE
     Indication: MAJOR DEPRESSION
     Dosage: 1 DF, UNKNOWN
     Route: 065

REACTIONS (3)
  - Increased appetite [Unknown]
  - Off label use [Recovered/Resolved]
  - Weight increased [Unknown]
